FAERS Safety Report 21497337 (Version 1)
Quarter: 2022Q4

REPORT INFORMATION
  Report Type: Spontaneous
  Country: US (occurrence: None)
  Receive Date: 20221021
  Receipt Date: 20221021
  Transmission Date: 20230113
  Serious: No
  Sender: FDA-Public Use
  Company Number: None

PATIENT
  Age: 59 Year
  Sex: Male

DRUGS (4)
  1. KETOCONAZOLE [Suspect]
     Active Substance: KETOCONAZOLE
     Indication: Psoriasis
     Dosage: FREQUENCY : TWICE A WEEK;?JSE AS SHAMPOO TWO TIMES A WEEK FOR RASH AS?)IRECTED.?
     Dates: start: 202208
  2. KETOCONAZOLE [Suspect]
     Active Substance: KETOCONAZOLE
     Indication: Psoriasis
  3. TRIAMCINOLONE [Suspect]
     Active Substance: TRIAMCINOLONE
     Indication: Psoriasis
     Dosage: FREQUENCY : TWICE A DAY;?APPLY TO THE SCALP TWICE DAILY AS NEEDED FOR ITCHING?AND FLAKING?
     Dates: start: 202208
  4. TRIAMCINOLONE [Suspect]
     Active Substance: TRIAMCINOLONE
     Indication: Psoriasis

REACTIONS (2)
  - Renal failure [None]
  - Dialysis [None]
